FAERS Safety Report 7554185-9 (Version None)
Quarter: 2011Q2

REPORT INFORMATION
  Report Type: 
  Country: None (occurrence: None)
  Receive Date: 20110617
  Receipt Date: 20110614
  Transmission Date: 20111010
  Serious: Yes (Hospitalization, Other)
  Sender: FDA-Public Use
  Company Number: US-PFIZER INC-2011061748

PATIENT
  Sex: Male

DRUGS (2)
  1. LAMOTRIGINE [Concomitant]
     Indication: MOOD ALTERED
     Dosage: UNK
     Dates: start: 20080716
  2. CHANTIX [Suspect]
     Indication: SMOKING CESSATION THERAPY
     Dosage: STARTER PACK
     Route: 048
     Dates: start: 20081003, end: 20081201

REACTIONS (7)
  - MENTAL DISORDER [None]
  - DEPRESSION [None]
  - MOOD SWINGS [None]
  - ANXIETY [None]
  - PARANOIA [None]
  - SUICIDAL IDEATION [None]
  - EMOTIONAL DISORDER [None]
